FAERS Safety Report 4689704-3 (Version None)
Quarter: 2005Q2

REPORT INFORMATION
  Report Type: 
  Country: None (occurrence: None)
  Receive Date: 20050613
  Receipt Date: 20050613
  Transmission Date: 20051028
  Serious: No
  Sender: FDA-Public Use
  Company Number: None

PATIENT
  Sex: Male
  Weight: 143 kg

DRUGS (6)
  1. EFFEXOR [Suspect]
     Indication: DEPRESSION
     Dosage: 7.5 MG BID ORAL
     Route: 048
     Dates: start: 20050509, end: 20050531
  2. CELEXA [Concomitant]
  3. FLEXERIL [Concomitant]
  4. MOTRIN [Concomitant]
  5. PRILOSEC [Concomitant]
  6. TERAZOSIN [Concomitant]

REACTIONS (4)
  - ASTHENIA [None]
  - CONDITION AGGRAVATED [None]
  - CONVULSION [None]
  - FALL [None]
